FAERS Safety Report 5050823-3 (Version None)
Quarter: 2006Q3

REPORT INFORMATION
  Report Type: 
  Country: None (occurrence: None)
  Receive Date: 20060710
  Receipt Date: 20060626
  Transmission Date: 20061208
  Serious: Yes (Death)
  Sender: FDA-Public Use
  Company Number: 226673

PATIENT
  Age: 68 Year
  Sex: Male

DRUGS (2)
  1. MABTHERA (RITUXIMAB) CONC FOR SOLUTION FOR INFUSION [Suspect]
     Indication: MANTLE CELL LYMPHOMA
  2. CHEMOTHERAPY (ANTINEOPLASTIC AGENT NOS) [Concomitant]

REACTIONS (1)
  - DEATH [None]
